FAERS Safety Report 9228127 (Version 2)
Quarter: 2013Q2

REPORT INFORMATION
  Report Type: Spontaneous
  Country: US (occurrence: US)
  Receive Date: 20130412
  Receipt Date: 20130507
  Transmission Date: 20140414
  Serious: Yes (Hospitalization, Other)
  Sender: FDA-Public Use
  Company Number: US-ROCHE-1209912

PATIENT
  Age: 42 Year
  Sex: Female

DRUGS (13)
  1. ACTILYSE [Suspect]
     Indication: PULMONARY EMBOLISM
     Dosage: DOSE: 15 MG
     Route: 040
  2. ACTILYSE [Suspect]
     Dosage: DOSE:85 MG,  INFUSION OVER A PERIOD OF 90 MINUTES
     Route: 042
  3. HEPARIN [Suspect]
     Indication: PULMONARY EMBOLISM
     Dosage: DOSE: 1300 UNITS OVER 1 HOUR
     Route: 065
  4. WARFARIN [Suspect]
     Indication: PULMONARY EMBOLISM
     Route: 065
  5. EPINEPHRINE [Concomitant]
     Dosage: TWO 1-MG DOSES
     Route: 065
  6. ATROPINE [Concomitant]
     Route: 065
  7. IBUPROFEN [Concomitant]
  8. HYDROCODONE/ACETAMINOPHEN [Concomitant]
  9. ASPIRIN [Concomitant]
  10. 50% DEXTROSE [Concomitant]
     Dosage: ONE AMPULE
     Route: 065
  11. SODIUM BICARBONATE [Concomitant]
     Dosage: ONE AMPULE
     Route: 065
  12. PHENYTOIN [Concomitant]
  13. ARGATROBAN [Concomitant]

REACTIONS (6)
  - Cerebellar haemorrhage [Unknown]
  - Haemorrhage [Unknown]
  - Grand mal convulsion [Unknown]
  - Renal failure acute [Unknown]
  - Haematoma [Unknown]
  - Epistaxis [Unknown]
